FAERS Safety Report 19363620 (Version 1)
Quarter: 2021Q2

REPORT INFORMATION
  Report Type: Spontaneous
  Country: IT (occurrence: IT)
  Receive Date: 20210603
  Receipt Date: 20210603
  Transmission Date: 20210717
  Serious: Yes (Other)
  Sender: FDA-Public Use
  Company Number: IT-SUN PHARMACEUTICAL INDUSTRIES LTD-2021R1-298948

PATIENT
  Age: 7 Year
  Sex: Male

DRUGS (3)
  1. OXCARBAZEPINE. [Suspect]
     Active Substance: OXCARBAZEPINE
     Indication: PSYCHOTIC DISORDER
     Dosage: 750 MILLIGRAM, DAILY
     Route: 065
  2. BIPERIDENE HYDROCHLORIDE [Suspect]
     Active Substance: BIPERIDEN
     Indication: PSYCHOTIC DISORDER
     Dosage: 100 MILLIGRAM, DAILY
     Route: 065
  3. RISPERIDONE. [Suspect]
     Active Substance: RISPERIDONE
     Indication: PSYCHOTIC DISORDER
     Dosage: 1.5 MILLIGRAM, DAILY
     Route: 065

REACTIONS (5)
  - Tremor [Not Recovered/Not Resolved]
  - Enuresis [Recovered/Resolved]
  - Drug ineffective [Recovered/Resolved]
  - Intentional self-injury [Recovering/Resolving]
  - Aggression [Recovering/Resolving]
